FAERS Safety Report 5224925-2 (Version None)
Quarter: 2007Q1

REPORT INFORMATION
  Report Type: 
  Country: None (occurrence: None)
  Receive Date: 20070126
  Receipt Date: 20070112
  Transmission Date: 20070707
  Serious: Yes (Other)
  Sender: FDA-Public Use
  Company Number: SPV1-2007-00234

PATIENT
  Age: 21 Year
  Sex: Male

DRUGS (2)
  1. PENTASA [Suspect]
     Dosage: 1000 MG 3X DAILY
     Dates: start: 20060926, end: 20061228
  2. MAGNESIUM OXIDE (MAGNESIUM OXIDE) [Concomitant]

REACTIONS (1)
  - BLOOD CREATINE PHOSPHOKINASE INCREASED [None]
